FAERS Safety Report 4377061-1 (Version None)
Quarter: 2004Q2

REPORT INFORMATION
  Report Type: 
  Country: None (occurrence: None)
  Receive Date: 20040614
  Receipt Date: 20040603
  Transmission Date: 20050107
  Serious: Yes (Hospitalization)
  Sender: FDA-Public Use
  Company Number: US-ROCHE-370114

PATIENT
  Age: 44 Year
  Sex: Female

DRUGS (4)
  1. KLONOPIN [Suspect]
     Indication: DRUG USE FOR UNKNOWN INDICATION
     Route: 065
  2. WELLBUTRIN XL [Suspect]
     Indication: DEPRESSION
     Route: 048
     Dates: start: 20040415
  3. WELLBUTRIN XL [Suspect]
     Route: 048
  4. LITHIUM CARBONATE [Concomitant]

REACTIONS (6)
  - DIARRHOEA [None]
  - DIZZINESS [None]
  - DRUG SCREEN POSITIVE [None]
  - MUSCLE SPASMS [None]
  - OVERDOSE [None]
  - VOMITING [None]
